FAERS Safety Report 4911801-5 (Version None)
Quarter: 2006Q1

REPORT INFORMATION
  Report Type: 
  Country: None (occurrence: None)
  Receive Date: 20060213
  Receipt Date: 20060213
  Transmission Date: 20060701
  Serious: Yes (Hospitalization)
  Sender: FDA-Public Use
  Company Number: None

PATIENT
  Age: 66 Year
  Sex: Female
  Weight: 70.5 kg

DRUGS (8)
  1. ALIMTA [Suspect]
     Indication: LEIOMYOSARCOMA METASTATIC
     Dosage: 300 MG/M2 /Q 2 WK /IV PORT
     Route: 042
     Dates: start: 20060112
  2. TAXOTERE [Suspect]
     Dosage: 25 MG/M2/Q 2 WE/IV PORT
     Route: 042
     Dates: start: 20060112
  3. IBUPROFEN [Concomitant]
  4. MORPHINE [Concomitant]
  5. XANAX [Concomitant]
  6. UNASOM [Concomitant]
  7. DRIXORAL [Concomitant]
  8. ATACAND HCT [Concomitant]

REACTIONS (2)
  - LETHARGY [None]
  - MALAISE [None]
